FAERS Safety Report 12275481 (Version 2)
Quarter: 2016Q2

REPORT INFORMATION
  Report Type: Spontaneous
  Country: US (occurrence: US)
  Receive Date: 20160415
  Receipt Date: 20160512
  Transmission Date: 20160815
  Serious: No
  Sender: FDA-Public Use
  Company Number: US-UCBSA-2015025430

PATIENT
  Sex: Female
  Weight: 118 kg

DRUGS (2)
  1. NEUPRO [Suspect]
     Active Substance: ROTIGOTINE
     Indication: PARKINSON^S DISEASE
     Dosage: 4 MG, ONCE DAILY (QD)
  2. NEUPRO [Suspect]
     Active Substance: ROTIGOTINE
     Dosage: 6 MG; HIGHER DOSE

REACTIONS (3)
  - Dyskinesia [Unknown]
  - Drug ineffective [Unknown]
  - Peripheral swelling [Recovered/Resolved]
